FAERS Safety Report 24107507 (Version 1)
Quarter: 2024Q3

REPORT INFORMATION
  Report Type: Report from Study
  Country: CA (occurrence: None)
  Receive Date: 20240718
  Receipt Date: 20240718
  Transmission Date: 20241017
  Serious: Yes (Other)
  Sender: ASTRAZENECA
  Company Number: 2019SF70726

PATIENT
  Sex: Female

DRUGS (5)
  1. FASENRA [Suspect]
     Active Substance: BENRALIZUMAB
     Indication: Asthma
     Dosage: 30.0MG UNKNOWN
     Route: 058
     Dates: start: 20190809, end: 20191001
  2. PREDNISONE [Concomitant]
     Active Substance: PREDNISONE
     Dates: start: 20181201, end: 20190529
  3. SPIRIVA [Concomitant]
     Active Substance: TIOTROPIUM BROMIDE MONOHYDRATE
  4. SYMBICORT [Concomitant]
     Active Substance: BUDESONIDE\FORMOTEROL FUMARATE DIHYDRATE
  5. XOLAIR [Concomitant]
     Active Substance: OMALIZUMAB
     Dates: start: 20181101, end: 20190101

REACTIONS (10)
  - Serum sickness [Unknown]
  - Fatigue [Unknown]
  - Sleep disorder [Unknown]
  - Nausea [Unknown]
  - Retching [Unknown]
  - Vomiting [Unknown]
  - Influenza like illness [Unknown]
  - Hot flush [Unknown]
  - Pain [Unknown]
  - Condition aggravated [Unknown]
